FAERS Safety Report 8273533-8 (Version None)
Quarter: 2012Q2

REPORT INFORMATION
  Report Type: 
  Country: None (occurrence: None)
  Receive Date: 20120409
  Receipt Date: 20120409
  Transmission Date: 20120825
  Serious: Yes (Hospitalization)
  Sender: FDA-Public Use
  Company Number: None

PATIENT
  Sex: Male
  Weight: 79.8331 kg

DRUGS (1)
  1. PEGASYS [Suspect]
     Indication: HEPATITIS C
     Dosage: 180 MCG PFS SUBCUTANEOUSLY
     Route: 058
     Dates: start: 20120316

REACTIONS (2)
  - UNEVALUABLE EVENT [None]
  - HOSPITALISATION [None]
